FAERS Safety Report 7327241-8 (Version None)
Quarter: 2011Q1

REPORT INFORMATION
  Report Type: 
  Country: None (occurrence: None)
  Receive Date: 20110302
  Receipt Date: 20110223
  Transmission Date: 20110831
  Serious: Yes (Other)
  Sender: FDA-Public Use
  Company Number: US-BAXTER-2011BH004228

PATIENT
  Age: 62 Year
  Sex: Female

DRUGS (2)
  1. VITAMIN D [Concomitant]
     Dosage: DOSE UNIT:UNKNOWN
     Route: 048
  2. DIANEAL [Suspect]
     Indication: PERITONEAL DIALYSIS
     Route: 033
     Dates: start: 20090101

REACTIONS (3)
  - PARATHYROID DISORDER [None]
  - CONDITION AGGRAVATED [None]
  - BLOOD CALCIUM DECREASED [None]
